FAERS Safety Report 23342999 (Version 1)
Quarter: 2023Q4

REPORT INFORMATION
  Report Type: Spontaneous
  Country: US (occurrence: None)
  Receive Date: 20231226
  Receipt Date: 20231226
  Transmission Date: 20240110
  Serious: No
  Sender: FDA-Public Use
  Company Number: None

PATIENT
  Sex: Female

DRUGS (2)
  1. SILDENAFIL CITRATE [Suspect]
     Active Substance: SILDENAFIL CITRATE
     Indication: Pulmonary arterial hypertension
     Dosage: OTHER FREQUENCY : Q8H;?
     Route: 048
  2. AMBRISENTAN [Concomitant]

REACTIONS (3)
  - Dyspnoea [None]
  - Joint swelling [None]
  - Depression [None]
